FAERS Safety Report 21377782 (Version 1)
Quarter: 2022Q3

REPORT INFORMATION
  Report Type: Report from Study
  Country: CA (occurrence: CA)
  Receive Date: 20220926
  Receipt Date: 20220926
  Transmission Date: 20221026
  Serious: Yes (Other)
  Sender: FDA-Public Use
  Company Number: CA-TAKEDA-2022TUS067292

PATIENT
  Age: 31 Year
  Sex: Female

DRUGS (3)
  1. VEDOLIZUMAB [Suspect]
     Active Substance: VEDOLIZUMAB
     Indication: Colitis ulcerative
     Dosage: 300 MILLIGRAM
     Route: 042
     Dates: start: 20220520
  2. PURINETHOL [Concomitant]
     Active Substance: MERCAPTOPURINE
     Dosage: 50 MILLIGRAM
     Dates: start: 20220121
  3. MESALAMINE [Concomitant]
     Active Substance: MESALAMINE
     Dosage: 2.4 MILLIGRAM
     Dates: start: 201104

REACTIONS (1)
  - Colitis ulcerative [Unknown]
